FAERS Safety Report 19578530 (Version 1)
Quarter: 2021Q3

REPORT INFORMATION
  Report Type: Spontaneous
  Country: US (occurrence: US)
  Receive Date: 20210719
  Receipt Date: 20210719
  Transmission Date: 20211014
  Serious: Yes (Other)
  Sender: FDA-Public Use
  Company Number: US-GLAXOSMITHKLINE-US2021GSK155059

PATIENT
  Sex: Male

DRUGS (2)
  1. RANITIDINE. [Suspect]
     Active Substance: RANITIDINE
     Indication: LARYNGEAL CANCER
     Dosage: 150 MG, QD
     Route: 065
     Dates: start: 200401, end: 200701
  2. RANITIDINE. [Suspect]
     Active Substance: RANITIDINE
     Indication: LARYNGEAL CANCER
     Dosage: 150 MG, QD
     Route: 065
     Dates: start: 200401, end: 200701

REACTIONS (1)
  - Prostate cancer [Unknown]
